FAERS Safety Report 8811827 (Version 1)
Quarter: 2012Q4

REPORT INFORMATION
  Report Type: 
  Country: FR (occurrence: FR)
  Receive Date: 20120927
  Receipt Date: 20120927
  Transmission Date: 20130627
  Serious: Yes (Other)
  Sender: FDA-Public Use
  Company Number: FR-GLAXOSMITHKLINE-B0711543A

PATIENT
  Sex: Female
  Weight: 61 kg

DRUGS (4)
  1. REQUIP [Suspect]
     Indication: PARKINSON^S DISEASE
     Dosage: 1UNIT per day
     Route: 048
     Dates: start: 2009, end: 2012
  2. REQUIP LP [Suspect]
     Indication: PARKINSON^S DISEASE
     Dosage: 4MG Per day
     Route: 048
     Dates: end: 20120802
  3. MODOPAR [Concomitant]
     Dosage: 125MG Four times per day
     Route: 065
     Dates: start: 2008
  4. TAHOR [Concomitant]
     Indication: DYSLIPIDAEMIA
     Route: 065

REACTIONS (2)
  - Pathological gambling [Not Recovered/Not Resolved]
  - Bulimia nervosa [Not Recovered/Not Resolved]
